FAERS Safety Report 9858413 (Version 1)
Quarter: 2014Q1

REPORT INFORMATION
  Report Type: Spontaneous
  Country: US (occurrence: None)
  Receive Date: 20140130
  Receipt Date: 20140130
  Transmission Date: 20141002
  Serious: Yes (Disabling)
  Sender: FDA-Public Use
  Company Number: None

PATIENT
  Age: 77 Year
  Sex: Male
  Weight: 77.11 kg

DRUGS (1)
  1. PRADAXA [Suspect]
     Indication: ATRIAL FIBRILLATION
     Dosage: TAKEN BY MOUTH
     Route: 048
     Dates: start: 20140122, end: 20140125

REACTIONS (3)
  - Mouth haemorrhage [None]
  - Dysphagia [None]
  - Odynophagia [None]
